FAERS Safety Report 5236228-0 (Version None)
Quarter: 2007Q1

REPORT INFORMATION
  Report Type: 
  Country: None (occurrence: None)
  Receive Date: 20061208
  Receipt Date: 20060126
  Transmission Date: 20070707
  Serious: Yes (Other)
  Sender: FDA-Public Use
  Company Number: 2006UW01443

PATIENT
  Age: 72 Year
  Sex: Female
  Weight: 47.627 kg

DRUGS (1)
  1. CRESTOR [Suspect]
     Indication: HYPERCHOLESTEROLAEMIA
     Dosage: 5 MG BIWK PO
     Route: 047
     Dates: start: 20051001

REACTIONS (1)
  - CHROMATURIA [None]
